FAERS Safety Report 4449315-1 (Version None)
Quarter: 2004Q3

REPORT INFORMATION
  Report Type: 
  Country: None (occurrence: None)
  Receive Date: 20040913
  Receipt Date: 20040901
  Transmission Date: 20050211
  Serious: Yes (Hospitalization)
  Sender: FDA-Public Use
  Company Number: 140010USA

PATIENT
  Age: 51 Year
  Sex: Female

DRUGS (12)
  1. FLUOROURACIL [Suspect]
     Indication: OESOPHAGEAL CARCINOMA
     Dosage: 370 MILLIGRAM INTRAVENOUS (NOS)
     Route: 042
     Dates: start: 20040427, end: 20040526
  2. TAXOL [Suspect]
     Indication: OESOPHAGEAL CARCINOMA
     Dosage: 330 MILLIGRAM INTRAVENOUS (NOS)
     Route: 042
     Dates: start: 20040427, end: 20040519
  3. CARBOPLATIN [Suspect]
     Indication: OESOPHAGEAL CARCINOMA
     Dosage: 580 MILLIGRAM INTRAVENOUS (NOS)
     Route: 042
     Dates: start: 20040427, end: 20040519
  4. ZOFRAN [Concomitant]
  5. DIFLUCAN [Concomitant]
  6. GRANULOCYTES [Concomitant]
  7. CARAFATE [Concomitant]
  8. DILAUDID [Concomitant]
  9. PREVACID [Concomitant]
  10. ATIVAN [Concomitant]
  11. DIPHENOXYLATE [Concomitant]
  12. ENOXAPARIN SODIUM [Concomitant]

REACTIONS (3)
  - CULTURE URINE POSITIVE [None]
  - FEBRILE NEUTROPENIA [None]
  - HAEMOGLOBIN DECREASED [None]
